FAERS Safety Report 19792775 (Version 1)
Quarter: 2021Q3

REPORT INFORMATION
  Report Type: Spontaneous
  Country: CN (occurrence: CN)
  Receive Date: 20210906
  Receipt Date: 20210906
  Transmission Date: 20211014
  Serious: Yes (Hospitalization, Other)
  Sender: FDA-Public Use
  Company Number: CN-ASTRAZENECA-2021A709038

PATIENT
  Age: 28855 Day
  Sex: Male
  Weight: 65 kg

DRUGS (1)
  1. ROSUVASTATIN CALCIUM. [Suspect]
     Active Substance: ROSUVASTATIN CALCIUM
     Indication: ARTERIOSCLEROTIC RETINOPATHY
     Route: 048
     Dates: start: 20210530, end: 20210630

REACTIONS (3)
  - Drug-induced liver injury [Recovering/Resolving]
  - Hepatic function abnormal [Recovering/Resolving]
  - Vertebrobasilar insufficiency [Recovering/Resolving]

NARRATIVE: CASE EVENT DATE: 20210624
